FAERS Safety Report 9543788 (Version 3)
Quarter: 2013Q4

REPORT INFORMATION
  Report Type: Report from Study
  Country: BE (occurrence: BE)
  Receive Date: 20130923
  Receipt Date: 20131004
  Transmission Date: 20140711
  Serious: Yes (Life-Threatening, Hospitalization, Other)
  Sender: FDA-Public Use
  Company Number: BE-SANOFI-AVENTIS-CLOF-1002520

PATIENT
  Age: 60 Year
  Sex: Male
  Weight: 79 kg

DRUGS (11)
  1. CLOFARABINE [Suspect]
     Indication: ACUTE MYELOID LEUKAEMIA
     Dosage: 19.7, INDUCTION I (DAY 1, 2, 3, 4, 5)
     Route: 042
     Dates: start: 20121204, end: 20121208
  2. CLOFARABINE [Suspect]
     Indication: ACUTE MYELOID LEUKAEMIA
     Dosage: 18.90 MG, INDUCTION II  (DAY 1, 2, 3, 4, 5)
     Route: 042
     Dates: start: 20130109, end: 20130113
  3. CYTARABINE [Suspect]
     Indication: ACUTE MYELOID LEUKAEMIA
     Dosage: 394 UNK, UNK, INDUCTION I
     Route: 042
     Dates: start: 20121204
  4. CYTARABINE [Suspect]
     Indication: ACUTE MYELOID LEUKAEMIA
     Dosage: 1890 MG (X2), INDUCTION II
     Route: 042
     Dates: start: 20130109
  5. IDARUBICIN [Suspect]
     Indication: ACUTE MYELOID LEUKAEMIA
     Dosage: 23.64 MG, UNK, INDUCTION I
     Route: 042
     Dates: start: 20121204
  6. AMSACRINE [Suspect]
     Indication: ACUTE MYELOID LEUKAEMIA
     Dosage: 226.80 MG, UNK, INDUCTION II
     Route: 042
     Dates: start: 20130112
  7. BISOPROLOL FUMARATE [Concomitant]
     Indication: CARDIOVASCULAR EVENT PROPHYLAXIS
     Dosage: 5 MG, UNK
     Route: 048
     Dates: start: 20121204
  8. ACETYLSALICYLIC ACID [Concomitant]
     Indication: CARDIOVASCULAR EVENT PROPHYLAXIS
     Dosage: 80 MG, UNK
     Route: 048
     Dates: start: 20121204
  9. PANTOMEDU [Concomitant]
     Indication: PAIN PROPHYLAXIS
     Dosage: 20 MG, UNK
     Route: 048
     Dates: start: 20121204
  10. NADROPARIN CALCIUM [Concomitant]
     Indication: THROMBOSIS PROPHYLAXIS
     Dosage: 0.6 ML, UNK
     Route: 059
     Dates: start: 20121204
  11. VORICONAZOLE [Concomitant]
     Indication: ANTIFUNGAL PROPHYLAXIS
     Dosage: 250 MG, UNK
     Route: 048
     Dates: start: 20130211

REACTIONS (7)
  - Orthostatic hypotension [Recovered/Resolved]
  - Staphylococcal sepsis [Recovered/Resolved]
  - Pulmonary embolism [Not Recovered/Not Resolved]
  - Subclavian vein thrombosis [Recovered/Resolved]
  - Jugular vein thrombosis [Recovered/Resolved]
  - Respiratory failure [Recovered/Resolved]
  - Aspergillus infection [Recovered/Resolved]
